FAERS Safety Report 16939457 (Version 1)
Quarter: 2019Q4

REPORT INFORMATION
  Report Type: Spontaneous
  Country: GB (occurrence: GB)
  Receive Date: 20191021
  Receipt Date: 20191021
  Transmission Date: 20200122
  Serious: Yes (Hospitalization)
  Sender: FDA-Public Use
  Company Number: GB-BAXTER-2019BAX020492

PATIENT

DRUGS (2)
  1. POTASSIUM CHLORIDE 0.15% W/V AND GLUCOSE 5% W/V SOLUTION FOR INFUSION [Suspect]
     Active Substance: DEXTROSE\POTASSIUM CHLORIDE
     Indication: PRODUCT USED FOR UNKNOWN INDICATION
     Route: 065
  2. POTASSIUM CHLORIDE 0.15% W/V AND SODIUM CHLORIDE 0.9% W/V SOLUTION FOR [Suspect]
     Active Substance: POTASSIUM CHLORIDE\SODIUM CHLORIDE
     Indication: PRODUCT USED FOR UNKNOWN INDICATION
     Route: 065

REACTIONS (1)
  - Sepsis [Unknown]
